FAERS Safety Report 9468407 (Version 1)
Quarter: 2013Q3

REPORT INFORMATION
  Report Type: Report from Study
  Country: MX (occurrence: MX)
  Receive Date: 20130821
  Receipt Date: 20130821
  Transmission Date: 20140515
  Serious: Yes (Death, Hospitalization)
  Sender: FDA-Public Use
  Company Number: PHHY2013MX090188

PATIENT
  Age: 82 Year
  Sex: Female

DRUGS (3)
  1. TRILEPTAL [Suspect]
     Indication: EPILEPSY
     Dosage: 1.5 DF, DAILY
     Route: 048
  2. EUTIROX [Concomitant]
     Dosage: 1 DF, DAILY
  3. AMIODARONE [Concomitant]
     Indication: INFARCTION
     Dosage: 1 DF, DAILY

REACTIONS (3)
  - Myocardial infarction [Fatal]
  - Syncope [Unknown]
  - Abdominal pain upper [Unknown]
